FAERS Safety Report 6760024-6 (Version None)
Quarter: 2010Q2

REPORT INFORMATION
  Report Type: 
  Country: None (occurrence: None)
  Receive Date: 20100604
  Receipt Date: 20100525
  Transmission Date: 20101027
  Serious: Yes (Other)
  Sender: FDA-Public Use
  Company Number: 1000012225

PATIENT
  Age: 47 Year
  Sex: Male
  Weight: 80 kg

DRUGS (2)
  1. ESCITALOPRAM [Suspect]
     Dosage: 10 MG (10 MG,1 IN 1 D) ORAL
     Route: 048
     Dates: start: 20091101, end: 20091101
  2. ANALGESICS [Concomitant]

REACTIONS (6)
  - FAECAL INCONTINENCE [None]
  - FALL [None]
  - HOT FLUSH [None]
  - PARAESTHESIA [None]
  - SEROTONIN SYNDROME [None]
  - VERTIGO [None]
